FAERS Safety Report 6788943-5 (Version None)
Quarter: 2010Q2

REPORT INFORMATION
  Report Type: 
  Country: None (occurrence: None)
  Receive Date: 20100623
  Receipt Date: 20080603
  Transmission Date: 20101027
  Serious: No
  Sender: FDA-Public Use
  Company Number: US-PFIZER INC-2008047565

PATIENT
  Sex: Female
  Weight: 63.5 kg

DRUGS (2)
  1. DEPO-PROVERA SUSPENSION/INJ [Suspect]
  2. PLAN B [Concomitant]
     Indication: CONTRACEPTION
     Route: 048
     Dates: start: 20080522

REACTIONS (1)
  - UNEVALUABLE EVENT [None]
